FAERS Safety Report 18789066 (Version 3)
Quarter: 2021Q1

REPORT INFORMATION
  Report Type: Spontaneous
  Country: DE (occurrence: DE)
  Receive Date: 20210126
  Receipt Date: 20210327
  Transmission Date: 20210419
  Serious: Yes (Life-Threatening, Hospitalization)
  Sender: FDA-Public Use
  Company Number: DE-DRREDDYS-GER/GER/21/0131157

PATIENT
  Age: 58 Year
  Sex: Female

DRUGS (2)
  1. TEMZOLOMIDE [Suspect]
     Active Substance: TEMOZOLOMIDE
     Indication: NEUROENDOCRINE TUMOUR
     Route: 048
     Dates: start: 201906, end: 201907
  2. CAPECITABINE. [Suspect]
     Active Substance: CAPECITABINE
     Indication: NEUROENDOCRINE TUMOUR
     Route: 048
     Dates: start: 201906, end: 201907

REACTIONS (8)
  - Breast necrosis [Recovered/Resolved]
  - Pancytopenia [Recovered/Resolved]
  - Myelosuppression [Recovered/Resolved]
  - Pneumonia fungal [Recovered/Resolved]
  - Haematotoxicity [Recovered/Resolved]
  - Bone marrow failure [Recovered/Resolved]
  - Mastitis [Recovered/Resolved]
  - Febrile neutropenia [Recovered/Resolved]

NARRATIVE: CASE EVENT DATE: 201907
